FAERS Safety Report 20739969 (Version 1)
Quarter: 2022Q2

REPORT INFORMATION
  Report Type: Spontaneous
  Country: US (occurrence: None)
  Receive Date: 20220422
  Receipt Date: 20220422
  Transmission Date: 20220721
  Serious: Yes (Hospitalization)
  Sender: FDA-Public Use
  Company Number: None

PATIENT
  Age: 48 Year
  Sex: Female
  Weight: 62.1 kg

DRUGS (1)
  1. AMOXICILLIN\CLAVULANATE POTASSIUM [Suspect]
     Active Substance: AMOXICILLIN\CLAVULANATE POTASSIUM
     Indication: Ear infection
     Dosage: OTHER QUANTITY : 1 TABLET(S);?FREQUENCY : EVERY 12 HOURS;?
     Route: 048
     Dates: start: 20220329, end: 20220405

REACTIONS (13)
  - Paraesthesia [None]
  - White coat hypertension [None]
  - Anxiety [None]
  - Therapy non-responder [None]
  - Head discomfort [None]
  - Insomnia [None]
  - Palpitations [None]
  - Skin discolouration [None]
  - Synovial cyst [None]
  - Decreased appetite [None]
  - Weight decreased [None]
  - Paraesthesia [None]
  - Hypertension [None]

NARRATIVE: CASE EVENT DATE: 20220401
